FAERS Safety Report 7598457-0 (Version None)
Quarter: 2011Q3

REPORT INFORMATION
  Report Type: 
  Country: None (occurrence: None)
  Receive Date: 20110708
  Receipt Date: 20110624
  Transmission Date: 20111222
  Serious: Yes (Other)
  Sender: FDA-Public Use
  Company Number: GB-WATSON-2011-10231

PATIENT
  Age: 44 Year
  Sex: Female

DRUGS (5)
  1. SIMVASTATIN [Suspect]
     Indication: HYPERLIPIDAEMIA
     Dosage: 40 MG, BID
     Route: 048
  2. NICORANDIL [Concomitant]
     Indication: ANGINA PECTORIS
     Dosage: 20 MG, BID
     Route: 065
  3. ATENOLOL [Concomitant]
     Indication: PRODUCT USED FOR UNKNOWN INDICATION
     Dosage: 25 MG, BID
     Route: 065
  4. ISOSORBIDE MONONITRATE [Concomitant]
     Indication: PRODUCT USED FOR UNKNOWN INDICATION
     Dosage: 40 MG, BID
     Route: 065
  5. IBUPROFEN [Concomitant]
     Indication: PRODUCT USED FOR UNKNOWN INDICATION
     Dosage: UNK
     Route: 065

REACTIONS (8)
  - DISTURBANCE IN ATTENTION [None]
  - AMNESIA [None]
  - CONFUSIONAL STATE [None]
  - DYSPNOEA [None]
  - SYNCOPE [None]
  - DIZZINESS [None]
  - MEMORY IMPAIRMENT [None]
  - COORDINATION ABNORMAL [None]
